FAERS Safety Report 18975682 (Version 1)
Quarter: 2021Q1

REPORT INFORMATION
  Report Type: Spontaneous
  Country: US (occurrence: US)
  Receive Date: 20210305
  Receipt Date: 20210305
  Transmission Date: 20210420
  Serious: Yes (Other)
  Sender: FDA-Public Use
  Company Number: US-BAYER-2021-079912

PATIENT
  Age: 7 Year
  Sex: Male

DRUGS (3)
  1. PROBIOTICS NOS [Concomitant]
     Active Substance: PROBIOTICS NOS
     Dosage: UNK
  2. MACROGOL 3350 [Suspect]
     Active Substance: POLYETHYLENE GLYCOL 3350
     Indication: CONSTIPATION
     Dosage: UNK
  3. SENNA SPP [Concomitant]
     Dosage: UNK

REACTIONS (5)
  - Diarrhoea [None]
  - Abdominal pain [Recovered/Resolved]
  - Off label use [None]
  - Product use in unapproved indication [None]
  - Coeliac disease [None]
